FAERS Safety Report 4423250-7 (Version None)
Quarter: 2004Q3

REPORT INFORMATION
  Report Type: 
  Country: None (occurrence: None)
  Receive Date: 20040810
  Receipt Date: 20040810
  Transmission Date: 20050211
  Serious: Yes (Life-Threatening)
  Sender: FDA-Public Use
  Company Number: None

PATIENT
  Sex: Female
  Weight: 86.1834 kg

DRUGS (1)
  1. DEXFERRUM [Suspect]
     Indication: ANAEMIA
     Dosage: 1000MG WEEKLY X 2 INTRAVENOUS
     Route: 042
     Dates: start: 20040804, end: 20040804

REACTIONS (3)
  - ANXIETY [None]
  - DYSPNOEA [None]
  - TREMOR [None]
